FAERS Safety Report 7783137-9 (Version None)
Quarter: 2011Q3

REPORT INFORMATION
  Report Type: 
  Country: None (occurrence: None)
  Receive Date: 20110928
  Receipt Date: 20110915
  Transmission Date: 20111222
  Serious: Yes (Other)
  Sender: FDA-Public Use
  Company Number: PHHY2011EC82811

PATIENT
  Sex: Female

DRUGS (3)
  1. DIOVAN [Suspect]
     Indication: HYPERTENSION
     Dosage: 160 MG, DAILY
     Dates: start: 20101001, end: 20110501
  2. NORVASC [Concomitant]
     Dosage: 5 MG, DAILY
     Route: 048
  3. DIOVAN [Suspect]
     Dosage: 320 MG, DAILY
     Dates: start: 20110501

REACTIONS (2)
  - OEDEMA PERIPHERAL [None]
  - EYE HAEMORRHAGE [None]
